FAERS Safety Report 10600112 (Version 1)
Quarter: 2014Q4

REPORT INFORMATION
  Report Type: Spontaneous
  Country: US (occurrence: US)
  Receive Date: 20141122
  Receipt Date: 20141122
  Transmission Date: 20150529
  Serious: No
  Sender: FDA-Public Use
  Company Number: US-SA-2014SA140847

PATIENT
  Age: 68 Year
  Sex: Female

DRUGS (3)
  1. RENVELA [Suspect]
     Active Substance: SEVELAMER CARBONATE
     Indication: NEPHROPATHY
     Dosage: 1 PACKET
     Route: 048
     Dates: start: 2014
  2. RENVELA [Suspect]
     Active Substance: SEVELAMER CARBONATE
     Indication: NEPHROPATHY
     Dosage: 1 PACKET
     Route: 048
  3. RENVELA [Suspect]
     Active Substance: SEVELAMER CARBONATE
     Indication: NEPHROPATHY
     Dosage: 1 PACKET
     Route: 048
     Dates: start: 2014

REACTIONS (4)
  - Dyspepsia [Not Recovered/Not Resolved]
  - Dysgeusia [Not Recovered/Not Resolved]
  - Vomiting [Not Recovered/Not Resolved]
  - Headache [Not Recovered/Not Resolved]

NARRATIVE: CASE EVENT DATE: 2014
